FAERS Safety Report 5445138-5 (Version None)
Quarter: 2007Q3

REPORT INFORMATION
  Report Type: 
  Country: None (occurrence: None)
  Receive Date: 20070730
  Receipt Date: 20070529
  Transmission Date: 20080115
  Serious: Yes (Hospitalization)
  Sender: FDA-Public Use
  Company Number: 239304

PATIENT
  Age: 14 Year
  Sex: Male
  Weight: 150 kg

DRUGS (1)
  1. RITUXAN [Suspect]
     Indication: SYSTEMIC LUPUS ERYTHEMATOSUS
     Dosage: 375 MG/M2, X4, INTRAVENOUS; 375 MG/M2, X2, INTRAVENOUS
     Route: 042

REACTIONS (2)
  - PLATELET COUNT DECREASED [None]
  - PYREXIA [None]
